FAERS Safety Report 9440941 (Version 1)
Quarter: 2013Q3

REPORT INFORMATION
  Report Type: Spontaneous
  Country: US (occurrence: US)
  Receive Date: 20130805
  Receipt Date: 20130805
  Transmission Date: 20140515
  Serious: No
  Sender: FDA-Public Use
  Company Number: US-B.I. PHARMACEUTICALS,INC./RIDGEFIELD-2013-BI-22646BP

PATIENT
  Age: 61 Year
  Sex: Male

DRUGS (9)
  1. COMBIVENT [Suspect]
     Indication: CHRONIC OBSTRUCTIVE PULMONARY DISEASE
     Dosage: STRENGTH: 20 MCG / 100 MCG; DAILY DOSE: 80 MCG /400 MCG
     Route: 055
     Dates: start: 20130715
  2. FLOMAX [Suspect]
     Indication: URINE FLOW DECREASED
     Dosage: 0.4 MG
  3. BUDESOMIDE [Concomitant]
     Route: 055
  4. ALBUTEROL [Concomitant]
     Route: 055
  5. PRILOSEC [Concomitant]
     Indication: ABDOMINAL PAIN UPPER
     Dosage: 40 MG
     Route: 048
  6. RESTORIL [Concomitant]
     Indication: SLEEP DISORDER
     Dosage: 30 MG
     Route: 048
  7. LORTAB [Concomitant]
     Indication: BACK PAIN
     Dosage: DAILY DOSE: 10/ 500 MG
     Route: 048
  8. SOMA [Concomitant]
     Indication: NEUROPATHY PERIPHERAL
     Dosage: 350 MG
     Route: 048
  9. PERCOCET [Concomitant]
     Indication: ABDOMINAL PAIN UPPER
     Dosage: DAILY DOSE: 10/325 MG
     Route: 048

REACTIONS (4)
  - Dyspnoea [Unknown]
  - Dyspnoea [Not Recovered/Not Resolved]
  - Wheezing [Not Recovered/Not Resolved]
  - Dyspnoea [Not Recovered/Not Resolved]
